FAERS Safety Report 13294083 (Version 2)
Quarter: 2017Q2

REPORT INFORMATION
  Report Type: Report from Study
  Country: US (occurrence: US)
  Receive Date: 20170303
  Receipt Date: 20170511
  Transmission Date: 20170830
  Serious: Yes (Other)
  Sender: FDA-Public Use
  Company Number: US-UCBSA-2017007755

PATIENT
  Age: 0 Year
  Sex: Female

DRUGS (18)
  1. CERTOLIZUMAB PEGOL RA [Suspect]
     Active Substance: CERTOLIZUMAB PEGOL
     Indication: PSORIATIC ARTHROPATHY
     Dosage: 400 MG, MONTHLY (QM)
     Route: 064
     Dates: start: 20150801, end: 20161006
  2. CERTOLIZUMAB PEGOL RA [Suspect]
     Active Substance: CERTOLIZUMAB PEGOL
     Dosage: 400 MG, MONTHLY (QM)
     Route: 064
     Dates: start: 20161020, end: 20161020
  3. HEPARIN [Concomitant]
     Active Substance: HEPARIN SODIUM
     Indication: PRODUCT USED FOR UNKNOWN INDICATION
     Dosage: 500 MG, 2X/DAY (BID)
     Route: 064
  4. SULFASALAZINE. [Concomitant]
     Active Substance: SULFASALAZINE
     Indication: PSORIATIC ARTHROPATHY
     Dosage: 2000 MG, ONCE DAILY (QD)
     Route: 064
     Dates: start: 20160223, end: 20161028
  5. FOLIC ACID. [Concomitant]
     Active Substance: FOLIC ACID
     Dosage: 2 MG, ONCE DAILY (QD)
     Route: 063
  6. PRENATAL VITAMINS [Concomitant]
     Active Substance: VITAMINS
     Indication: PRODUCT USED FOR UNKNOWN INDICATION
     Dosage: 1 DF DAILY
     Route: 064
     Dates: start: 20160223, end: 20161028
  7. FLU [Concomitant]
     Active Substance: INFLUENZA VIRUS VACCINE
     Indication: PRODUCT USED FOR UNKNOWN INDICATION
     Dosage: UNK
     Dates: start: 20160925, end: 20160925
  8. DIPHTHERIA TETANUS ACELLULAR PERTUSSIS [Concomitant]
     Indication: PRODUCT USED FOR UNKNOWN INDICATION
     Dosage: DAILY
     Route: 030
     Dates: start: 20140515, end: 20140515
  9. FOLIC ACID. [Concomitant]
     Active Substance: FOLIC ACID
     Indication: PSORIATIC ARTHROPATHY
     Dosage: 2 MG, ONCE DAILY (QD)
     Route: 064
  10. CERTOLIZUMAB PEGOL RA [Suspect]
     Active Substance: CERTOLIZUMAB PEGOL
     Dosage: UNK
     Route: 063
  11. HEPARIN [Concomitant]
     Active Substance: HEPARIN SODIUM
     Dosage: 500 MG, 2X/DAY (BID)
     Route: 063
  12. TYLENOL [Concomitant]
     Active Substance: ACETAMINOPHEN
     Indication: HEADACHE
     Dosage: 325 MG 2 TOTAL
     Route: 064
     Dates: start: 20160223, end: 20160524
  13. VITAMIN D [Concomitant]
     Active Substance: CHOLECALCIFEROL
     Dosage: 1000 IU DAILY
     Route: 064
     Dates: start: 20160223, end: 20160823
  14. LOVENOX [Concomitant]
     Active Substance: ENOXAPARIN SODIUM
     Indication: THROMBOSIS
     Dosage: 40 ?G DAILY
     Route: 064
     Dates: start: 20160308, end: 20161028
  15. MEDROL [Concomitant]
     Active Substance: METHYLPREDNISOLONE
     Indication: PSORIATIC ARTHROPATHY
     Dosage: 2 MG, ONCE DAILY (QD)
     Route: 064
  16. IRON [Concomitant]
     Active Substance: IRON
     Indication: PRODUCT USED FOR UNKNOWN INDICATION
     Dosage: 1 DF DAILY
     Route: 064
  17. TERCONAZOLE. [Concomitant]
     Active Substance: TERCONAZOLE
     Indication: FUNGAL INFECTION
     Dosage: 3 TOTAL
     Route: 064
     Dates: start: 20160720, end: 20160726
  18. TERCONAZOLE. [Concomitant]
     Active Substance: TERCONAZOLE
     Dosage: 7 TOTAL
     Route: 064
     Dates: start: 20160810, end: 20160831

REACTIONS (6)
  - Small for dates baby [Unknown]
  - Premature baby [Unknown]
  - Ventricular septal defect [Recovering/Resolving]
  - Foetal growth restriction [Unknown]
  - Exposure during breast feeding [Unknown]
  - Foetal exposure during pregnancy [Unknown]

NARRATIVE: CASE EVENT DATE: 2016
